FAERS Safety Report 11619296 (Version 1)
Quarter: 2015Q4

REPORT INFORMATION
  Report Type: Spontaneous
  Country: FR (occurrence: FR)
  Receive Date: 20151012
  Receipt Date: 20151012
  Transmission Date: 20160304
  Serious: Yes (Death, Hospitalization)
  Sender: FDA-Public Use
  Company Number: FR-PFIZER INC-2015331650

PATIENT
  Age: 74 Year
  Sex: Female
  Weight: 72 kg

DRUGS (4)
  1. ROVAMYCINE /00074401/ [Concomitant]
     Active Substance: SPIRAMYCIN
     Dosage: UNK
     Dates: start: 20150711
  2. LASILIX /00032601/ [Concomitant]
     Active Substance: FUROSEMIDE
     Dosage: UNK
     Dates: start: 20150711
  3. CEFTRIAXONE SODIUM. [Suspect]
     Active Substance: CEFTRIAXONE SODIUM
     Dosage: UNK
     Dates: start: 20150711
  4. TAHOR [Suspect]
     Active Substance: ATORVASTATIN CALCIUM
     Dosage: UNK
     Route: 048
     Dates: start: 201507

REACTIONS (4)
  - Acute kidney injury [Fatal]
  - Lymphadenopathy [Fatal]
  - Hepatocellular injury [Fatal]
  - Drug reaction with eosinophilia and systemic symptoms [Fatal]

NARRATIVE: CASE EVENT DATE: 20150713
